FAERS Safety Report 24080580 (Version 1)
Quarter: 2024Q3

REPORT INFORMATION
  Report Type: Spontaneous
  Country: JP (occurrence: JP)
  Receive Date: 20240711
  Receipt Date: 20240711
  Transmission Date: 20241016
  Serious: Yes (Other)
  Sender: PFIZER
  Company Number: JP-PFIZER INC-PV202400089708

PATIENT
  Age: 83 Year
  Sex: Male

DRUGS (6)
  1. PAXLOVID [Suspect]
     Active Substance: NIRMATRELVIR\RITONAVIR
     Indication: COVID-19
     Dosage: 600 UNK, DAILY
     Route: 048
     Dates: start: 20240708, end: 20240708
  2. PLAVIX [Concomitant]
     Active Substance: CLOPIDOGREL BISULFATE
  3. LIPIDIL [Concomitant]
     Active Substance: FENOFIBRATE
  4. METFORMIN HYDROCHLORIDE\VILDAGLIPTIN [Concomitant]
     Active Substance: METFORMIN HYDROCHLORIDE\VILDAGLIPTIN
  5. RABEPRAZOLE [Concomitant]
     Active Substance: RABEPRAZOLE
  6. URSO [Concomitant]
     Active Substance: URSODIOL

REACTIONS (1)
  - Erythema nodosum [Not Recovered/Not Resolved]

NARRATIVE: CASE EVENT DATE: 20240709
